FAERS Safety Report 4783781-7 (Version None)
Quarter: 2005Q3

REPORT INFORMATION
  Report Type: 
  Country: None (occurrence: None)
  Receive Date: 20050928
  Receipt Date: 20050916
  Transmission Date: 20060218
  Serious: Yes (Hospitalization)
  Sender: FDA-Public Use
  Company Number: 2005RR-00740

PATIENT
  Age: 81 Year
  Sex: Male

DRUGS (3)
  1. IBUPROFEN [Suspect]
     Indication: POSTOPERATIVE ANALGESIA
     Dosage: 400 MG, QID, ORAL
     Route: 048
     Dates: end: 20050808
  2. ASPIRIN [Suspect]
     Indication: POSTOPERATIVE ANALGESIA
     Dosage: 75 MG, QD, ORAL
     Route: 048
     Dates: end: 20050808
  3. PAROXETINE HCL [Concomitant]

REACTIONS (3)
  - CHEST PAIN [None]
  - GASTROINTESTINAL HAEMORRHAGE [None]
  - MELAENA [None]
